FAERS Safety Report 6230829-9 (Version None)
Quarter: 2009Q2

REPORT INFORMATION
  Report Type: 
  Country: None (occurrence: None)
  Receive Date: 20090616
  Receipt Date: 20090610
  Transmission Date: 20091009
  Serious: Yes (Hospitalization)
  Sender: FDA-Public Use
  Company Number: US-ABBOTT-09P-163-0579075-00

PATIENT
  Age: 58 Year
  Sex: Male

DRUGS (3)
  1. TRILIPIX [Suspect]
     Indication: DRUG USE FOR UNKNOWN INDICATION
     Dates: start: 20090101, end: 20090601
  2. CADUET [Concomitant]
     Indication: DRUG USE FOR UNKNOWN INDICATION
     Dosage: 10/10MG
  3. PLAVIX [Concomitant]
     Indication: DRUG USE FOR UNKNOWN INDICATION
     Dates: start: 20090401

REACTIONS (4)
  - BLOOD TRIGLYCERIDES INCREASED [None]
  - HIGH DENSITY LIPOPROTEIN DECREASED [None]
  - LOW DENSITY LIPOPROTEIN INCREASED [None]
  - MYOCARDIAL INFARCTION [None]
